FAERS Safety Report 20779533 (Version 4)
Quarter: 2022Q3

REPORT INFORMATION
  Report Type: Report from Study
  Country: CN (occurrence: CN)
  Receive Date: 20220503
  Receipt Date: 20220701
  Transmission Date: 20221027
  Serious: Yes (Hospitalization, Other)
  Sender: FDA-Public Use
  Company Number: CN-EVEREST MEDICINES CHINA-20220400590

PATIENT
  Age: 56 Year
  Sex: Female
  Weight: 62.4 kg

DRUGS (12)
  1. SACITUZUMAB GOVITECAN [Suspect]
     Active Substance: SACITUZUMAB GOVITECAN
     Indication: Hormone receptor positive HER2 negative breast cancer
     Dosage: 627 MG, ONCE, CYCLE 1 DAY 1
     Route: 042
     Dates: start: 20220407
  2. SACITUZUMAB GOVITECAN [Suspect]
     Active Substance: SACITUZUMAB GOVITECAN
     Dosage: 627 MG, ONCE, CYCLE 1 DAY 8
     Route: 042
     Dates: start: 20220414
  3. NORFLOXACIN [Suspect]
     Active Substance: NORFLOXACIN
     Indication: Diarrhoea
     Dosage: 0.4 G, BID
     Route: 048
     Dates: start: 20220419, end: 20220420
  4. MONTMORILLONITE [Suspect]
     Active Substance: MONTMORILLONITE
     Indication: Diarrhoea
     Dosage: 3 G, TID
     Route: 065
     Dates: start: 20220415, end: 20220419
  5. LOPERAMIDE [Suspect]
     Active Substance: LOPERAMIDE
     Indication: Diarrhoea
     Dosage: 4 MG BID
     Route: 065
     Dates: start: 20220420, end: 20220420
  6. CIMETIDINE [Concomitant]
     Active Substance: CIMETIDINE
     Indication: Prophylaxis
     Dosage: 0.2 G
     Route: 065
     Dates: start: 20220414, end: 20220414
  7. CIMETIDINE [Concomitant]
     Active Substance: CIMETIDINE
     Indication: Chemotherapy side effect prophylaxis
  8. DIPHENHYDRAMINE [Concomitant]
     Active Substance: DIPHENHYDRAMINE
     Indication: Prophylaxis
     Dosage: 20 MG
     Route: 065
     Dates: start: 20220414, end: 20220414
  9. DIPHENHYDRAMINE [Concomitant]
     Active Substance: DIPHENHYDRAMINE
     Indication: Chemotherapy side effect prophylaxis
  10. GRANULOCYTE COLONY-STIMULATING FACTOR NOS [Concomitant]
     Active Substance: GRANULOCYTE COLONY-STIMULATING FACTOR NOS
     Indication: Prophylaxis
     Dosage: 150 UG
     Route: 065
     Dates: start: 20220118, end: 20220418
  11. GRANULOCYTE COLONY-STIMULATING FACTOR NOS [Concomitant]
     Active Substance: GRANULOCYTE COLONY-STIMULATING FACTOR NOS
     Dosage: 300 UG
     Route: 065
     Dates: start: 20220419, end: 20220421
  12. LOPERAMIDE HYDROCHLORIDE [Concomitant]
     Active Substance: LOPERAMIDE HYDROCHLORIDE
     Indication: Diarrhoea
     Dosage: 4 MG
     Route: 048
     Dates: start: 20220420, end: 20220420

REACTIONS (1)
  - Ileus [Recovered/Resolved]

NARRATIVE: CASE EVENT DATE: 20220421
